FAERS Safety Report 16821958 (Version 2)
Quarter: 2019Q4

REPORT INFORMATION
  Report Type: Spontaneous
  Country: ZA (occurrence: ZA)
  Receive Date: 20190918
  Receipt Date: 20191007
  Transmission Date: 20200122
  Serious: Yes (Other)
  Sender: FDA-Public Use
  Company Number: ZA-AMGEN-ZAFSP2019142517

PATIENT
  Age: 33 Year
  Sex: Female

DRUGS (15)
  1. TEGRETOL [Concomitant]
     Active Substance: CARBAMAZEPINE
     Indication: DEPRESSION
     Dosage: 200 MILLIGRAM, QD
  2. COXFLAM [Concomitant]
     Active Substance: MELOXICAM
     Dosage: 15 MILLIGRAM, QD
  3. TRAMACET [Concomitant]
     Active Substance: ACETAMINOPHEN\TRAMADOL
     Indication: DEPRESSION
     Dosage: 500 MILLIGRAM, BID
  4. OMEZ [OMEPRAZOLE] [Concomitant]
     Active Substance: OMEPRAZOLE
     Dosage: 20 MILLIGRAM, QD
  5. CILIFT [Concomitant]
     Active Substance: CITALOPRAM HYDROBROMIDE
     Indication: DEPRESSION
     Dosage: 20 MG, AT NIGHT
  6. ADCO TALOMIL [Concomitant]
     Active Substance: CITALOPRAM HYDROBROMIDE
     Indication: DEPRESSION
     Dosage: 20 MILLIGRAM, QD
  7. TREPILINE [AMITRIPTYLINE] [Concomitant]
     Active Substance: AMITRIPTYLINE
     Dosage: 25 MILLIGRAM, QD
  8. PREDNISONE. [Concomitant]
     Active Substance: PREDNISONE
     Dosage: 20 MILLIGRAM, QD
  9. YAZ [Concomitant]
     Active Substance: DROSPIRENONE\ETHINYL ESTRADIOL
     Dosage: 1 TABLET DAILY
  10. ENBREL [Suspect]
     Active Substance: ETANERCEPT
     Indication: RHEUMATOID ARTHRITIS
     Dosage: 50 MILLIGRAM, QWK
     Route: 058
     Dates: start: 20190826
  11. INDOBLOK [Concomitant]
     Active Substance: PROPRANOLOL HYDROCHLORIDE
     Indication: DEPRESSION
     Dosage: 10 MILLIGRAM, BID
  12. PLASMOQUINE [Concomitant]
     Active Substance: CHLOROQUINE SULFATE
     Dosage: 25 MILLIGRAM, QWK
  13. METHOTREXATE SODIUM. [Concomitant]
     Active Substance: METHOTREXATE SODIUM
     Dosage: 15 MILLIGRAM, QWK
  14. FOLIC ACID. [Concomitant]
     Active Substance: FOLIC ACID
     Dosage: 5 MG, FOR 5 DAYS
  15. SALAZOPYRIN [Concomitant]
     Active Substance: SULFASALAZINE
     Dosage: UNK

REACTIONS (8)
  - Dyspepsia [Not Recovered/Not Resolved]
  - Influenza [Recovered/Resolved]
  - Fatigue [Not Recovered/Not Resolved]
  - Vomiting [Recovered/Resolved]
  - Arthralgia [Not Recovered/Not Resolved]
  - Respiratory tract infection [Recovered/Resolved]
  - Nausea [Recovered/Resolved]
  - Musculoskeletal stiffness [Not Recovered/Not Resolved]

NARRATIVE: CASE EVENT DATE: 20190827
